FAERS Safety Report 19918760 (Version 2)
Quarter: 2021Q4

REPORT INFORMATION
  Report Type: Spontaneous
  Country: US (occurrence: US)
  Receive Date: 20211005
  Receipt Date: 20211015
  Transmission Date: 20220303
  Serious: Yes (Other)
  Sender: FDA-Public Use
  Company Number: US-BAYER-2021A217458

PATIENT
  Age: 34 Year
  Sex: Male

DRUGS (2)
  1. JIVI [Suspect]
     Active Substance: DAMOCTOCOG ALFA PEGOL
     Dosage: 5000 DF
     Route: 042
  2. JIVI [Suspect]
     Active Substance: DAMOCTOCOG ALFA PEGOL
     Dosage: 5000 DF
     Route: 042
     Dates: start: 20210918, end: 20210918

REACTIONS (9)
  - Haemorrhage [None]
  - Haemarthrosis [None]
  - Haemorrhage [None]
  - Haemarthrosis [None]
  - Haemarthrosis [None]
  - Haemorrhage [None]
  - Muscle haemorrhage [None]
  - Intentional product use issue [None]
  - Product availability issue [None]

NARRATIVE: CASE EVENT DATE: 20210918
